FAERS Safety Report 12903386 (Version 1)
Quarter: 2016Q4

REPORT INFORMATION
  Report Type: Spontaneous
  Country: CA (occurrence: CA)
  Receive Date: 20161102
  Receipt Date: 20161102
  Transmission Date: 20170207
  Serious: Yes (Hospitalization)
  Sender: FDA-Public Use
  Company Number: CA-ROCHE-1849420

PATIENT
  Sex: Female
  Weight: 46 kg

DRUGS (1)
  1. ALTEPLASE [Suspect]
     Active Substance: ALTEPLASE
     Indication: EMBOLIC STROKE
     Route: 042

REACTIONS (7)
  - Peritoneal haemorrhage [Recovered/Resolved]
  - Cardiac valve fibroelastoma [Recovered/Resolved]
  - Depressed level of consciousness [Recovered/Resolved]
  - Haemoglobin decreased [Recovered/Resolved]
  - Haemorrhagic transformation stroke [Recovered/Resolved]
  - Uterine leiomyoma [Recovered/Resolved]
  - Haemorrhage intracranial [Recovered/Resolved]
